FAERS Safety Report 9606945 (Version 3)
Quarter: 2013Q4

REPORT INFORMATION
  Report Type: Spontaneous
  Country: US (occurrence: US)
  Receive Date: 20131008
  Receipt Date: 20131028
  Transmission Date: 20140711
  Serious: Yes (Other)
  Sender: FDA-Public Use
  Company Number: US-RB-059165-13

PATIENT
  Age: 67 Year
  Sex: Male

DRUGS (2)
  1. MUCINEX DM [Suspect]
     Indication: NASOPHARYNGITIS
     Dosage: TOOK PRODUCT FOR 2 DAYS FOR A TOTAL OF 3 TABLETS.
     Route: 048
     Dates: start: 20131019
  2. ACETYLSALICYLIC ACID [Concomitant]
     Indication: PRODUCT USED FOR UNKNOWN INDICATION
     Dosage: TOOK 81MG A FEW DAYS A WEEK.

REACTIONS (1)
  - Epistaxis [Recovered/Resolved]
